FAERS Safety Report 9918767 (Version 1)
Quarter: 2014Q1

REPORT INFORMATION
  Report Type: Spontaneous
  Country: NL (occurrence: NL)
  Receive Date: 20140224
  Receipt Date: 20140224
  Transmission Date: 20141002
  Serious: Yes (Life-Threatening, Hospitalization, Other)
  Sender: FDA-Public Use
  Company Number: NL-ELI_LILLY_AND_COMPANY-NL201402006644

PATIENT
  Age: 17 Year
  Sex: Male
  Weight: 60 kg

DRUGS (1)
  1. FLUOXETINE HYDROCHLORIDE [Suspect]
     Indication: DEPRESSION SUICIDAL
     Dosage: 20 MG, QD
     Route: 065
     Dates: start: 20130109

REACTIONS (3)
  - Suicide attempt [Recovering/Resolving]
  - Spinal fracture [Recovering/Resolving]
  - Foot fracture [Recovering/Resolving]
